FAERS Safety Report 4597606-6 (Version None)
Quarter: 2005Q1

REPORT INFORMATION
  Report Type: 
  Country: None (occurrence: None)
  Receive Date: 20050228
  Receipt Date: 20050228
  Transmission Date: 20050727
  Serious: Yes (Hospitalization)
  Sender: FDA-Public Use
  Company Number: None

PATIENT
  Sex: Male

DRUGS (17)
  1. OXYCODONE HCL [Suspect]
     Indication: PAIN
     Dosage: 10 MG Q 2 HR ORAL
     Route: 048
     Dates: start: 20040329, end: 20040421
  2. OXYCODONE AND ACETAMINOPHEN [Concomitant]
  3. QUETIAPINE FUMARATE [Concomitant]
  4. VERAPAMIL [Concomitant]
  5. ASPIRIN [Concomitant]
  6. CALCITONIN [Concomitant]
  7. DIGOXIN [Concomitant]
  8. DOCUSATE [Concomitant]
  9. FUROSEMIDE [Concomitant]
  10. GABAPENTIN [Concomitant]
  11. GEMFIBROZIL [Concomitant]
  12. GLYBURIDE [Concomitant]
  13. INSULIN [Concomitant]
  14. LEVOTHYROXINE [Concomitant]
  15. HEPARIN SQ [Concomitant]
  16. LISINOPRIL [Concomitant]
  17. QUINIDINE HCL [Concomitant]

REACTIONS (4)
  - COMA [None]
  - HYPOTENSION [None]
  - RESPIRATORY FAILURE [None]
  - STUPOR [None]
